FAERS Safety Report 9298403 (Version 1)
Quarter: 2012Q4

REPORT INFORMATION
  Report Type: Spontaneous
  Country: NO (occurrence: None)
  Receive Date: 20121121
  Receipt Date: 20121121
  Transmission Date: 20130627
  Serious: Yes (Other)
  Sender: FDA-Public Use
  Company Number: THQ2012A07602

PATIENT
  Age: 55 Year
  Sex: Male

DRUGS (6)
  1. LANSOPRAZOLE (LANSOPRAZOLE) [Suspect]
     Indication: GASTROOESOPHAGEAL REFLUX DISEASE
     Dosage: (1 D)
Sto
  2. ESOMEPRAZOLE MAGNESIUM [Suspect]
     Indication: GASTROOESOPHAGEAL REFLUX DISEASE
     Dosage: (1D)
Sto
  3. LISINOPRIL [Concomitant]
  4. IRBESARTAN [Concomitant]
  5. AMLODIPINE [Concomitant]
  6. ACETYLSALICYLIC ACID [Concomitant]

REACTIONS (1)
  - Carcinoid tumour of the stomach [None]
